FAERS Safety Report 21825963 (Version 1)
Quarter: 2023Q1

REPORT INFORMATION
  Report Type: Spontaneous
  Country: ES (occurrence: ES)
  Receive Date: 20230106
  Receipt Date: 20230106
  Transmission Date: 20230418
  Serious: Yes (Hospitalization)
  Sender: FDA-Public Use
  Company Number: ES-AEMPS-1304704

PATIENT
  Age: 73 Year
  Sex: Male

DRUGS (8)
  1. IRBESARTAN [Suspect]
     Active Substance: IRBESARTAN
     Indication: Hypertension
     Dosage: 150 MILLIGRAM, QD
     Route: 048
     Dates: start: 20170927, end: 20220623
  2. OMEPRAZOLE [Suspect]
     Active Substance: OMEPRAZOLE
     Indication: Product used for unknown indication
     Dosage: 20 MILLIGRAM, QD
     Route: 048
     Dates: start: 20170921, end: 20220623
  3. METFORMIN [Suspect]
     Active Substance: METFORMIN HYDROCHLORIDE
     Indication: Diabetes mellitus
     Dosage: 1000 MILLIGRAM, BID
     Route: 048
     Dates: start: 20140114, end: 20220623
  4. ASPIRIN [Concomitant]
     Active Substance: ASPIRIN
     Indication: Cerebrovascular disorder
     Dosage: 100 MILLIGRAM DE
     Route: 048
     Dates: start: 20170922
  5. GLUCAGEN  HYPOKIT 1 mg POLVO Y DISOLVENTE [Concomitant]
     Indication: Hypoglycaemia
     Dosage: 1 MILLIGRAM, UNK
     Route: 030
     Dates: start: 20171102
  6. ABASAGLAR 100 UNIDADES/ML KWIKPEN SOLUCION INYECTABLE [Concomitant]
     Indication: Diabetes mellitus
     Dosage: 7 UI C/ 24H
     Route: 058
     Dates: start: 20170921
  7. ATORVASTATINA VIATRIS 20 MG COMPRIMIDOS RECUBIERTOS [Concomitant]
     Indication: Lipid metabolism disorder
     Dosage: 80 MILLIGRAM CE
     Route: 048
     Dates: start: 20140114
  8. IBUPROFENO CINFA 600 mg COMPRIMIDOS RECUBIERTOS CON PELICULA EFG [Concomitant]
     Indication: Product used for unknown indication
     Dosage: 1200 MILLIGRAM EVERY 7 DAYS
     Route: 048
     Dates: start: 20170921

REACTIONS (3)
  - Decreased appetite [Recovered/Resolved]
  - Acute kidney injury [Recovered/Resolved]
  - Diarrhoea [Recovered/Resolved]

NARRATIVE: CASE EVENT DATE: 20220622
